FAERS Safety Report 18799690 (Version 1)
Quarter: 2021Q1

REPORT INFORMATION
  Report Type: Spontaneous
  Country: CN (occurrence: CN)
  Receive Date: 20210128
  Receipt Date: 20210128
  Transmission Date: 20210419
  Serious: Yes (Other)
  Sender: FDA-Public Use
  Company Number: CN-PFIZER INC-2021064455

PATIENT
  Age: 28 Year
  Sex: Male
  Weight: 51.2 kg

DRUGS (3)
  1. SODIUM CHLORIDE. [Concomitant]
     Active Substance: SODIUM CHLORIDE
     Indication: VEHICLE SOLUTION USE
     Dosage: 500 ML, 3X/DAY
     Route: 041
     Dates: start: 20201202, end: 20201204
  2. METHOTREXATE. [Suspect]
     Active Substance: METHOTREXATE
     Indication: CHEMOTHERAPY
     Dosage: 1.6 G, 1X/DAY (D1)
     Route: 041
     Dates: start: 20201202, end: 20201202
  3. CYTARABINE. [Suspect]
     Active Substance: CYTARABINE
     Indication: CHEMOTHERAPY
     Dosage: 2.4 G, 2X/DAY (Q12H D2?D3)
     Route: 041
     Dates: start: 20201203, end: 20201204

REACTIONS (1)
  - Myelosuppression [Recovering/Resolving]

NARRATIVE: CASE EVENT DATE: 20201210
